FAERS Safety Report 6736347-3 (Version None)
Quarter: 2010Q2

REPORT INFORMATION
  Report Type: 
  Country: None (occurrence: None)
  Receive Date: 20100521
  Receipt Date: 20100514
  Transmission Date: 20101027
  Serious: Yes (Hospitalization)
  Sender: FDA-Public Use
  Company Number: US-JNJFOC-20100505314

PATIENT
  Age: 6 Year
  Sex: Male
  Weight: 20.41 kg

DRUGS (4)
  1. CHILDREN'S MOTRIN [Suspect]
     Indication: OROPHARYNGEAL PAIN
     Dosage: ^4 DOSES^ EVERY 4-6 HOURS
     Route: 048
  2. CHILDREN'S MOTRIN [Suspect]
     Indication: PYREXIA
     Dosage: ^4 DOSES^ EVERY 4-6 HOURS
     Route: 048
  3. CHILDREN'S TYLENOL LIQUID GRAPE SPLASH [Suspect]
     Indication: PYREXIA
     Dosage: ^4 DOSES^ EVERY 4 TO 6 HOURS
     Route: 048
  4. CHILDREN'S TYLENOL LIQUID GRAPE SPLASH [Suspect]
     Indication: OROPHARYNGEAL PAIN
     Dosage: ^4 DOSES^ EVERY 4 TO 6 HOURS
     Route: 048

REACTIONS (3)
  - DRUG INEFFECTIVE [None]
  - PHARYNGITIS STREPTOCOCCAL [None]
  - PRODUCT QUALITY ISSUE [None]
